FAERS Safety Report 5806526-8 (Version None)
Quarter: 2008Q3

REPORT INFORMATION
  Report Type: 
  Country: None (occurrence: None)
  Receive Date: 20080710
  Receipt Date: 20080703
  Transmission Date: 20090109
  Serious: Yes (Life-Threatening, Hospitalization)
  Sender: FDA-Public Use
  Company Number: MX-BOEHRINGER INGELHEIM GMBH, GERMANY-2008-BP-10312RO

PATIENT
  Age: 19 Year
  Sex: Male

DRUGS (11)
  1. PREDNISOLONE [Suspect]
     Indication: IMMUNE RECONSTITUTION SYNDROME
  2. LAMIVUDINE [Suspect]
     Indication: ANTIRETROVIRAL THERAPY
  3. STAVUDINE [Suspect]
     Indication: ANTIRETROVIRAL THERAPY
  4. INDINIVIR SULFATE [Suspect]
     Indication: ANTIRETROVIRAL THERAPY
  5. RITONAVIR [Suspect]
     Indication: ANTIRETROVIRAL THERAPY
  6. VINCRISTINE [Concomitant]
     Indication: KAPOSI'S SARCOMA
  7. BLEOMYCIN SULFATE [Concomitant]
     Indication: KAPOSI'S SARCOMA
  8. PLATELET APHAERESIS [Concomitant]
     Indication: EPISTAXIS
  9. PLATELET APHAERESIS [Concomitant]
     Indication: MOUTH HAEMORRHAGE
  10. AMOXICILLIN [Concomitant]
     Indication: PNEUMOCOCCAL INFECTION
     Route: 048
  11. AMOXICILLIN [Concomitant]
     Indication: OTITIS MEDIA

REACTIONS (6)
  - EPISTAXIS [None]
  - KAPOSI'S SARCOMA [None]
  - MOUTH HAEMORRHAGE [None]
  - OTITIS MEDIA [None]
  - PNEUMOCOCCAL INFECTION [None]
  - THROMBOCYTOPENIA [None]
